FAERS Safety Report 4481051-8 (Version None)
Quarter: 2004Q4

REPORT INFORMATION
  Report Type: 
  Country: None (occurrence: None)
  Receive Date: 20041021
  Receipt Date: 20041013
  Transmission Date: 20050328
  Serious: Yes (Death, Hospitalization)
  Sender: FDA-Public Use
  Company Number: US-JNJFOC-20041003888

PATIENT
  Age: 73 Year
  Sex: Male

DRUGS (7)
  1. NATRECOR [Suspect]
     Indication: PULMONARY HYPERTENSION
     Dosage: INFUSION
     Route: 042
  2. NATRECOR [Suspect]
     Dosage: BOLUS
     Route: 042
  3. FUROSEMIDE [Concomitant]
  4. POTASSIUM CHLORIDE [Concomitant]
  5. LOVENOX [Concomitant]
  6. ATENOLOL [Concomitant]
  7. OMEPRAZOLE [Concomitant]

REACTIONS (3)
  - CARDIAC ARREST [None]
  - MYOCARDIAL INFARCTION [None]
  - TROPONIN INCREASED [None]
